FAERS Safety Report 12952261 (Version 1)
Quarter: 2016Q4

REPORT INFORMATION
  Report Type: Spontaneous
  Country: US (occurrence: US)
  Receive Date: 20161117
  Receipt Date: 20161117
  Transmission Date: 20170207
  Serious: Yes (Other)
  Sender: FDA-Public Use
  Company Number: US-BAYER-2016-214528

PATIENT
  Age: 58 Year
  Sex: Female

DRUGS (1)
  1. BETASERON [Suspect]
     Active Substance: INTERFERON BETA-1B
     Dosage: UNK

REACTIONS (6)
  - Migraine [None]
  - Drug ineffective [None]
  - Reversible cerebral vasoconstriction syndrome [None]
  - Multiple sclerosis relapse [None]
  - Cerebrovascular accident [None]
  - Seizure [None]
